FAERS Safety Report 19442495 (Version 2)
Quarter: 2021Q3

REPORT INFORMATION
  Report Type: Other
  Country: US (occurrence: US)
  Receive Date: 20210621
  Receipt Date: 20210921
  Transmission Date: 20211014
  Serious: No
  Sender: FDA-Public Use
  Company Number: US-ACORDA-ACO_168622_2021

PATIENT
  Sex: Female

DRUGS (1)
  1. INBRIJA [Suspect]
     Active Substance: LEVODOPA
     Indication: PARKINSON^S DISEASE
     Dosage: 42 MILLIGRAM; TWO 42 MG CAPSULES, AS NEEDED, UPTO FIVE TIMES DAILY
     Dates: start: 20180418

REACTIONS (4)
  - Device use issue [Unknown]
  - Dizziness [Unknown]
  - Cough [Not Recovered/Not Resolved]
  - Anxiety [Unknown]
